FAERS Safety Report 10456453 (Version 1)
Quarter: 2014Q3

REPORT INFORMATION
  Report Type: Spontaneous
  Country: US (occurrence: US)
  Receive Date: 20140916
  Receipt Date: 20140916
  Transmission Date: 20150326
  Serious: No
  Sender: FDA-Public Use
  Company Number: US-BAYER-2014-138031

PATIENT
  Age: 29 Year
  Sex: Male

DRUGS (1)
  1. GADAVIST [Suspect]
     Active Substance: GADOBUTROL
     Indication: SPINAL MYELOGRAM
     Dosage: 9 ML, ONCE
     Route: 042
     Dates: start: 20140909, end: 20140909

REACTIONS (1)
  - Eye disorder [None]

NARRATIVE: CASE EVENT DATE: 20140909
